FAERS Safety Report 16962257 (Version 12)
Quarter: 2022Q2

REPORT INFORMATION
  Report Type: Report from Study
  Country: US (occurrence: US)
  Receive Date: 20191025
  Receipt Date: 20220506
  Transmission Date: 20220721
  Serious: Yes (Death, Hospitalization)
  Sender: FDA-Public Use
  Company Number: US-ALNYLAM PHARMACEUTICALS, INC.-ALN-2019-000799

PATIENT

DRUGS (50)
  1. PATISIRAN SODIUM [Suspect]
     Active Substance: PATISIRAN SODIUM
     Indication: Hereditary neuropathic amyloidosis
     Dosage: 0.3 MILLIGRAM/KILOGRAM, Q3W
     Route: 042
     Dates: start: 20160523, end: 20200219
  2. ACETAMINOPHEN [Concomitant]
     Active Substance: ACETAMINOPHEN
     Indication: Prophylaxis
     Dosage: 650 MILLIGRAM, Q3W
     Route: 048
     Dates: start: 20160523, end: 20161129
  3. ACETAMINOPHEN [Concomitant]
     Active Substance: ACETAMINOPHEN
     Dosage: 500 MILLIGRAM, Q3W
     Route: 048
     Dates: start: 20161221
  4. DEXAMETHASONE [Concomitant]
     Active Substance: DEXAMETHASONE
     Indication: Prophylaxis
     Dosage: 10 MILLIGRAM, Q3W
     Route: 042
     Dates: start: 20160523, end: 20190320
  5. DEXAMETHASONE [Concomitant]
     Active Substance: DEXAMETHASONE
     Dosage: 7.5 MILLIGRAM, Q3W
     Route: 042
     Dates: start: 20190410, end: 20190523
  6. DEXAMETHASONE [Concomitant]
     Active Substance: DEXAMETHASONE
     Dosage: 5 MILLIGRAM, Q3W
     Route: 042
     Dates: start: 20190613
  7. DEXAMETHASONE [Concomitant]
     Active Substance: DEXAMETHASONE
     Dosage: 4 MILLIGRAM, TID
     Route: 048
     Dates: start: 20191018
  8. DIPHENHYDRAMINE [Concomitant]
     Active Substance: DIPHENHYDRAMINE
     Indication: Prophylaxis
     Dosage: 50 MILLIGRAM, Q3W
     Route: 042
     Dates: start: 20160523
  9. FAMOTIDINE [Concomitant]
     Active Substance: FAMOTIDINE
     Indication: Prophylaxis
     Dosage: 20 MILLIGRAM, Q3W
     Route: 042
     Dates: start: 20160523
  10. DIFLUNISAL [Concomitant]
     Active Substance: DIFLUNISAL
     Indication: Amyloidosis
     Dosage: 250 MILLIGRAM, BID
     Route: 048
     Dates: start: 20131022
  11. ENCORAFENIB [Concomitant]
     Active Substance: ENCORAFENIB
     Indication: Malignant melanoma stage III
     Dosage: 225 MILLIGRAM, BID
     Route: 048
     Dates: start: 20190117
  12. ENCORAFENIB [Concomitant]
     Active Substance: ENCORAFENIB
     Dosage: 225 MILLIGRAM, QD
     Route: 048
     Dates: start: 20190926
  13. EPIGALLOCATECHIN GALLATE [Concomitant]
     Active Substance: EPIGALLOCATECHIN GALLATE
     Indication: Amyloidosis
     Dosage: 800 MILLIGRAM, QD
     Route: 048
     Dates: start: 20130918
  14. LISINOPRIL [Concomitant]
     Active Substance: LISINOPRIL
     Indication: Hypertension
     Dosage: 10 MILLIGRAM, QD
     Route: 048
     Dates: start: 20190224, end: 20190928
  15. LISINOPRIL [Concomitant]
     Active Substance: LISINOPRIL
     Dosage: 20 MILLIGRAM, QD
     Route: 048
     Dates: start: 20190929
  16. LOMOTIL [Concomitant]
     Active Substance: ATROPINE SULFATE\DIPHENOXYLATE HYDROCHLORIDE
     Indication: Diarrhoea
     Dosage: 1-2 TBL, QD PRN
     Route: 048
     Dates: start: 20140609
  17. VITAMINS [Concomitant]
     Active Substance: VITAMINS
     Indication: Supplementation therapy
     Dosage: 1 DOSAGE FORM, QD
     Route: 048
     Dates: start: 20111221
  18. OMEGA-3 FATTY ACIDS [Concomitant]
     Active Substance: OMEGA-3 FATTY ACIDS
     Indication: Supplementation therapy
     Dosage: 1200 MILLIGRAM, QD
     Route: 048
     Dates: start: 20140115
  19. SILDENAFIL [Concomitant]
     Active Substance: SILDENAFIL
     Indication: Erectile dysfunction
     Dosage: 25 MILLIGRAM, PRN
     Route: 048
     Dates: start: 20150714
  20. TAPENTADOL HYDROCHLORIDE [Concomitant]
     Active Substance: TAPENTADOL HYDROCHLORIDE
     Indication: Neuralgia
     Dosage: 50 MILLIGRAM, QD
     Route: 048
     Dates: start: 20140224
  21. ACETAMINOPHEN [Concomitant]
     Active Substance: ACETAMINOPHEN
     Indication: Pain
     Dosage: 650 MILLIGRAM, PRN
     Route: 048
     Dates: start: 20190927, end: 20190928
  22. NORVASC [Concomitant]
     Active Substance: AMLODIPINE BESYLATE
     Indication: Hypertension
     Dosage: 5 MILLIGRAM, QD
     Route: 048
     Dates: start: 20190928
  23. ASPIRIN [Concomitant]
     Active Substance: ASPIRIN
     Indication: Cerebrovascular accident
     Dosage: 300 MILLIGRAM, QD
     Route: 054
     Dates: start: 20191010, end: 20191010
  24. ASPIRIN [Concomitant]
     Active Substance: ASPIRIN
     Dosage: 325 MILLIGRAM, QD
     Route: 048
     Dates: start: 20191011
  25. BINIMETINIB [Concomitant]
     Active Substance: BINIMETINIB
     Indication: Malignant melanoma stage III
     Dosage: 45 MILLIGRAM, BID
     Route: 048
     Dates: start: 20190117
  26. BINIMETINIB [Concomitant]
     Active Substance: BINIMETINIB
     Dosage: 15 MILLIGRAM, BID
     Route: 048
  27. PROSCAR [Concomitant]
     Active Substance: FINASTERIDE
     Indication: Benign prostatic hyperplasia
     Dosage: 5 MILLIGRAM, QD
     Route: 048
     Dates: start: 20190928
  28. PROSCAR [Concomitant]
     Active Substance: FINASTERIDE
     Indication: Urinary retention
  29. FLOMAX [Concomitant]
     Active Substance: TAMSULOSIN HYDROCHLORIDE
     Indication: Benign prostatic hyperplasia
     Dosage: 0.4 MILLIGRAM, QD
     Route: 048
     Dates: start: 20190927
  30. FLOMAX [Concomitant]
     Active Substance: TAMSULOSIN HYDROCHLORIDE
     Indication: Urinary retention
  31. GADAVIST [Concomitant]
     Active Substance: GADOBUTROL
     Indication: Imaging procedure
     Dosage: 7.5 MILLILITER, SINGLE
     Route: 042
     Dates: start: 20190927, end: 20190927
  32. GADAVIST [Concomitant]
     Active Substance: GADOBUTROL
     Dosage: 7 MILLILITER, SINGLE
     Route: 042
     Dates: start: 20190926, end: 20190926
  33. GADAVIST [Concomitant]
     Active Substance: GADOBUTROL
     Dosage: 7 MILLILITER, SINGLE
     Route: 042
     Dates: start: 20191024, end: 20191024
  34. GADAVIST [Concomitant]
     Active Substance: GADOBUTROL
     Dosage: 7 MILLILITER, SINGLE
     Route: 042
     Dates: start: 20191025, end: 20191025
  35. ISOVUE 300 [Concomitant]
     Active Substance: IOPAMIDOL
     Indication: Imaging procedure
     Dosage: 100 MILLILITER, SINGLE
     Route: 042
     Dates: start: 20190926, end: 20190928
  36. LACTATED RINGERS SOLUTION [Concomitant]
     Active Substance: CALCIUM CHLORIDE\POTASSIUM CHLORIDE\SODIUM CHLORIDE\SODIUM LACTATE
     Indication: Anaesthesia
     Dosage: UNK
     Route: 042
     Dates: start: 20190927, end: 20190927
  37. MORPHINE [Concomitant]
     Active Substance: MORPHINE
     Indication: Pain
     Dosage: 2 MILLIGRAM, PRN
     Route: 042
     Dates: start: 20190927, end: 20190928
  38. NEXIUM [Concomitant]
     Active Substance: ESOMEPRAZOLE MAGNESIUM
     Indication: Nausea
     Dosage: 40 MILLIGRAM, BID
     Route: 048
     Dates: start: 20190928
  39. NEXIUM [Concomitant]
     Active Substance: ESOMEPRAZOLE MAGNESIUM
     Indication: Vomiting
  40. OMNIPAQUE [Concomitant]
     Active Substance: IOHEXOL
     Indication: Imaging procedure
     Dosage: 240 MILLIGRAM, SINGLE
     Route: 042
     Dates: start: 20190926, end: 20190926
  41. PROTONIX [Concomitant]
     Active Substance: PANTOPRAZOLE SODIUM
     Indication: Nausea
     Dosage: 40 MILLIGRAM, BID
     Route: 042
     Dates: start: 20190926, end: 20190928
  42. PROTONIX [Concomitant]
     Active Substance: PANTOPRAZOLE SODIUM
     Indication: Vomiting
     Dosage: 40 MILLIGRAM, BID
     Route: 048
     Dates: start: 20191011, end: 20191011
  43. PROTONIX [Concomitant]
     Active Substance: PANTOPRAZOLE SODIUM
     Indication: Gastritis
     Dosage: 40 MILLIGRAM, QD
     Route: 048
     Dates: start: 20191024, end: 20191025
  44. SODIUM CHLORIDE [Concomitant]
     Active Substance: SODIUM CHLORIDE
     Indication: Dehydration
     Dosage: 35 MILLILITER PER HOUR
     Route: 042
     Dates: start: 20191011, end: 20191011
  45. SODIUM CHLORIDE [Concomitant]
     Active Substance: SODIUM CHLORIDE
     Dosage: 50 MILLILITER PER HOUR
     Route: 042
     Dates: start: 20190926, end: 20190927
  46. SODIUM CHLORIDE [Concomitant]
     Active Substance: SODIUM CHLORIDE
     Dosage: 2000 MILLILITER, SINGLE
     Route: 042
     Dates: start: 20190926, end: 20190926
  47. SODIUM CHLORIDE [Concomitant]
     Active Substance: SODIUM CHLORIDE
     Dosage: 3 MILLILITER, TID
     Route: 042
     Dates: start: 20191023, end: 20191025
  48. ZOFRAN [Concomitant]
     Active Substance: ONDANSETRON HYDROCHLORIDE
     Indication: Nausea
     Dosage: 4 MILLIGRAM, PRN
     Route: 042
     Dates: start: 20190927, end: 20190928
  49. ZOFRAN [Concomitant]
     Active Substance: ONDANSETRON HYDROCHLORIDE
     Indication: Vomiting
     Dosage: 4 MILLIGRAM, PRN
     Route: 048
     Dates: start: 20190927
  50. FLUCONAZOLE [Concomitant]
     Active Substance: FLUCONAZOLE
     Indication: Infection
     Dosage: 800 MILLIGRAM, QD
     Route: 048
     Dates: start: 20191022, end: 20191023

REACTIONS (3)
  - Confusional state [Fatal]
  - Metastases to meninges [Fatal]
  - Metastases to central nervous system [Fatal]

NARRATIVE: CASE EVENT DATE: 20190926
